FAERS Safety Report 10273417 (Version 1)
Quarter: 2014Q2

REPORT INFORMATION
  Report Type: Spontaneous
  Country: US (occurrence: None)
  Receive Date: 20140630
  Receipt Date: 20140630
  Transmission Date: 20141212
  Serious: Yes (Life-Threatening, Hospitalization)
  Sender: FDA-Public Use
  Company Number: None

PATIENT
  Age: 69 Year
  Sex: Male
  Weight: 99.3 kg

DRUGS (1)
  1. VANCOMYCIN [Suspect]
     Indication: ANTIBIOTIC PROPHYLAXIS
     Route: 042

REACTIONS (6)
  - Respiratory arrest [None]
  - Cardiac arrest [None]
  - Bradycardia [None]
  - Hypotension [None]
  - Pulseless electrical activity [None]
  - Ventricular tachycardia [None]
